FAERS Safety Report 24546439 (Version 2)
Quarter: 2024Q4

REPORT INFORMATION
  Report Type: Spontaneous
  Country: US (occurrence: US)
  Receive Date: 20241024
  Receipt Date: 20241106
  Transmission Date: 20250114
  Serious: No
  Sender: FRESENIUS KABI
  Company Number: US-FreseniusKabi-FK202415867

PATIENT
  Age: 50 Year
  Sex: Female
  Weight: 87 kg

DRUGS (7)
  1. DIPRIVAN [Suspect]
     Active Substance: PROPOFOL
     Indication: Colonoscopy
     Dosage: FORM OF ADMINISTRATION: INJECTION?125 MCG/KG/MIN?LOT WITH EXPIRY DATE UNKNOWN?644.4445 MG/HR 12:56-1
     Route: 041
     Dates: start: 20241017
  2. DIPRIVAN [Suspect]
     Active Substance: PROPOFOL
     Indication: Light anaesthesia
     Dosage: AT 12:55
     Route: 040
     Dates: start: 20241017
  3. DIPRIVAN [Suspect]
     Active Substance: PROPOFOL
     Dosage: AT 13:09?PATIENT WOKE UP 15 MINUTES AFTER TOTAL PROPOFOL IV BOLUS OF 80 MG AND PROPOFOL DRIP STARTED
     Route: 040
     Dates: start: 20241017
  4. DIPRIVAN [Suspect]
     Active Substance: PROPOFOL
     Dosage: AT 12:54
     Route: 040
     Dates: start: 20241017
  5. LIDOCAINE [Suspect]
     Active Substance: LIDOCAINE
     Indication: Sedation
     Dosage: LIDOCAINE PF 2 PERCENT INJ 5 ML @ 12:54
     Route: 042
     Dates: start: 20241017
  6. AMLODIPINE [Concomitant]
     Active Substance: AMLODIPINE BESYLATE
     Indication: Product used for unknown indication
     Dosage: FORM OF ADMIN.: TABLET
  7. OMEPRAZOLE [Concomitant]
     Active Substance: OMEPRAZOLE
     Indication: Product used for unknown indication
     Dosage: FORM OF ADMIN.: CAPSULE

REACTIONS (3)
  - Sedation complication [Unknown]
  - Therapeutic product effect decreased [Unknown]
  - Off label use [Unknown]

NARRATIVE: CASE EVENT DATE: 20241017
